FAERS Safety Report 11274548 (Version 2)
Quarter: 2015Q3

REPORT INFORMATION
  Report Type: Report from Study
  Country: DE (occurrence: DE)
  Receive Date: 20150715
  Receipt Date: 20150821
  Transmission Date: 20151125
  Serious: Yes (Hospitalization)
  Sender: FDA-Public Use
  Company Number: DE-ABBVIE-15P-062-1426524-00

PATIENT
  Age: 72 Year
  Sex: Male

DRUGS (5)
  1. LEVODOPA/CARBIDOPA [Concomitant]
     Active Substance: CARBIDOPA\LEVODOPA
     Indication: PRODUCT USED FOR UNKNOWN INDICATION
     Dosage: 200/50 MG
  2. VITAMIN B12 [Concomitant]
     Active Substance: CYANOCOBALAMIN
     Indication: PRODUCT USED FOR UNKNOWN INDICATION
     Route: 048
  3. DUODOPA [Suspect]
     Active Substance: CARBIDOPA\LEVODOPA
     Indication: PARKINSON^S DISEASE
     Dosage: MD 19.5ML, KRT 5.4ML/H, ED 4ML
     Route: 050
     Dates: start: 20150117
  4. MIRTAZAPINE. [Concomitant]
     Active Substance: MIRTAZAPINE
     Indication: PRODUCT USED FOR UNKNOWN INDICATION
  5. ROPINIROL [Concomitant]
     Active Substance: ROPINIROLE
     Indication: PRODUCT USED FOR UNKNOWN INDICATION

REACTIONS (17)
  - Gait disturbance [Unknown]
  - Drug effect decreased [Unknown]
  - Monoparesis [Unknown]
  - Loss of consciousness [Unknown]
  - Visual impairment [Unknown]
  - Hallucination, visual [Unknown]
  - Hyperhidrosis [Unknown]
  - Stoma site infection [Unknown]
  - Dysstasia [Unknown]
  - Depression [Unknown]
  - Dehydration [Not Recovered/Not Resolved]
  - Disorientation [Recovered/Resolved]
  - Sleep disorder [Unknown]
  - Vertigo [Recovered/Resolved]
  - Transient ischaemic attack [Unknown]
  - Fall [Unknown]
  - Peritonitis [Unknown]

NARRATIVE: CASE EVENT DATE: 2015
